FAERS Safety Report 23298147 (Version 1)
Quarter: 2023Q4

REPORT INFORMATION
  Report Type: Spontaneous
  Country: US (occurrence: US)
  Receive Date: 20231214
  Receipt Date: 20231214
  Transmission Date: 20240110
  Serious: Yes (Other)
  Sender: FDA-Public Use
  Company Number: US-009507513-2312USA001777

PATIENT
  Age: 74 Year
  Sex: Male

DRUGS (7)
  1. NOXAFIL [Suspect]
     Active Substance: POSACONAZOLE
     Indication: Fungal infection
     Dosage: 300 MILLIGRAM, QD. 2 DAYS
     Route: 048
  2. NOXAFIL [Suspect]
     Active Substance: POSACONAZOLE
     Dosage: 200 MILLIGRAM, TID. 1 DAY
     Route: 048
  3. NOXAFIL [Suspect]
     Active Substance: POSACONAZOLE
     Dosage: 300 MILLIGRAM, QD. DELAYED RELEASE TABLETS FORMULATION. VIA ENTERAL FEEDING TUBE
  4. NOXAFIL [Suspect]
     Active Substance: POSACONAZOLE
     Dosage: 301 NANOGRAM PER MILLIGRAM (3 DAYS)
  5. NOXAFIL [Suspect]
     Active Substance: POSACONAZOLE
     Dosage: 400 MILLIGRAM (NASOGASTRIC)
  6. NOXAFIL [Suspect]
     Active Substance: POSACONAZOLE
     Dosage: 499 NANOGRAM PER MILLIGRAM (4 DAYS)
  7. NOXAFIL [Suspect]
     Active Substance: POSACONAZOLE
     Dosage: 683 NANOGRAM PER MILLIGRAM (7 DAYS)

REACTIONS (5)
  - Hepatotoxicity [Unknown]
  - Drug level below therapeutic [Unknown]
  - Wrong technique in product usage process [Unknown]
  - Incorrect dose administered [Unknown]
  - Incorrect route of product administration [Unknown]
